FAERS Safety Report 11962478 (Version 9)
Quarter: 2019Q2

REPORT INFORMATION
  Report Type: Spontaneous
  Country: US (occurrence: US)
  Receive Date: 20160126
  Receipt Date: 20190606
  Transmission Date: 20190711
  Serious: Yes (Disabling, Other)
  Sender: FDA-Public Use
  Company Number: US-PROCTER_AND_GAMBLE-GS16003115

PATIENT
  Age: 57 Year
  Sex: Female
  Weight: 49.89 kg

DRUGS (7)
  1. AMBIEN [Concomitant]
     Active Substance: ZOLPIDEM TARTRATE
     Indication: SLEEP DISORDER
     Dosage: 10 MG, PRN
  2. CREST PRO-HEALTH SENSITIVIVE AND ENAMEL SHIELD [Suspect]
     Active Substance: STANNOUS FLUORIDE
     Dosage: N/A
     Route: 047
     Dates: start: 201512, end: 201512
  3. CLONAZEPAM. [Concomitant]
     Active Substance: CLONAZEPAM
     Indication: PANIC ATTACK
     Dosage: 1 MG, PRN
  4. ANTIDEPRESSANTS [Concomitant]
     Active Substance: UNSPECIFIED INGREDIENT
  5. ELAVIL [Concomitant]
     Active Substance: AMITRIPTYLINE HYDROCHLORIDE
     Indication: DEPRESSION
     Dosage: 100 MG, 1 AT NIGHT
  6. CREST PRO-HEALTH FOR LIFE (STANNOUS FLUORIDE) [Suspect]
     Active Substance: STANNOUS FLUORIDE
     Indication: DENTAL DISORDER PROPHYLAXIS
     Dosage: 2X DAILY, LENGTH OF BRISTLES
     Route: 047
     Dates: start: 20151130, end: 20151130
  7. CREST PRO-HEALTH SENSITIVIVE AND ENAMEL SHIELD [Suspect]
     Active Substance: STANNOUS FLUORIDE
     Dosage: N/A
     Route: 047
     Dates: start: 20151129, end: 20151129

REACTIONS (22)
  - Exposure via eye contact [Unknown]
  - Expired product administered [Unknown]
  - Eye inflammation [Not Recovered/Not Resolved]
  - Vision blurred [Not Recovered/Not Resolved]
  - Eye pain [Not Recovered/Not Resolved]
  - Headache [Not Recovered/Not Resolved]
  - Eye infection [Unknown]
  - Ocular hyperaemia [Unknown]
  - Visual acuity reduced [Not Recovered/Not Resolved]
  - Accidental exposure to product [Unknown]
  - Corneal scar [Not Recovered/Not Resolved]
  - Asthenopia [Not Recovered/Not Resolved]
  - Phantom limb syndrome [Not Recovered/Not Resolved]
  - Altered visual depth perception [Recovering/Resolving]
  - Migraine [Unknown]
  - Blindness [Not Recovered/Not Resolved]
  - Eye irritation [Unknown]
  - Corneal infection [Not Recovered/Not Resolved]
  - Eye injury [Not Recovered/Not Resolved]
  - Eye burns [Not Recovered/Not Resolved]
  - Injury corneal [Recovered/Resolved]
  - Weight decreased [Not Recovered/Not Resolved]

NARRATIVE: CASE EVENT DATE: 20151129
